FAERS Safety Report 14612992 (Version 1)
Quarter: 2018Q1

REPORT INFORMATION
  Report Type: Spontaneous
  Country: US (occurrence: US)
  Receive Date: 20180307
  Receipt Date: 20180307
  Transmission Date: 20180509
  Serious: Yes (Other)
  Sender: FDA-Public Use
  Company Number: None

PATIENT
  Age: 58 Year
  Sex: Female
  Weight: 72.57 kg

DRUGS (8)
  1. VITAMIN B12 [Concomitant]
     Active Substance: CYANOCOBALAMIN
  2. LOVAZA [Concomitant]
     Active Substance: OMEGA-3-ACID ETHYL ESTERS
  3. CINAMON [Concomitant]
  4. ASPIRIN. [Concomitant]
     Active Substance: ASPIRIN
  5. GARLIC. [Concomitant]
     Active Substance: GARLIC
  6. VITAMIN D [Concomitant]
     Active Substance: CHOLECALCIFEROL
  7. ZIANC [Concomitant]
  8. AMOXICILLIN. [Suspect]
     Active Substance: AMOXICILLIN
     Indication: PNEUMONIA
     Dosage: 1 PILL
     Route: 048
     Dates: start: 20180302, end: 20180304

REACTIONS (1)
  - Skin lesion [None]

NARRATIVE: CASE EVENT DATE: 20180303
